FAERS Safety Report 7645637-1 (Version None)
Quarter: 2011Q3

REPORT INFORMATION
  Report Type: 
  Country: None (occurrence: None)
  Receive Date: 20110729
  Receipt Date: 20110721
  Transmission Date: 20111222
  Serious: Yes (Hospitalization)
  Sender: FDA-Public Use
  Company Number: GXBR2011US03209

PATIENT
  Sex: Male

DRUGS (2)
  1. OMNITROPE [Suspect]
     Indication: BLOOD GROWTH HORMONE DECREASED
     Dosage: 0.6 MG, QD
     Dates: start: 20110319, end: 20110325
  2. OMNITROPE [Suspect]
     Dosage: 0.6 MG, QD
     Dates: start: 20110527

REACTIONS (2)
  - ASCITES [None]
  - POOR QUALITY DRUG ADMINISTERED [None]
